FAERS Safety Report 20842856 (Version 1)
Quarter: 2022Q2

REPORT INFORMATION
  Report Type: Spontaneous
  Country: US (occurrence: None)
  Receive Date: 20220517
  Receipt Date: 20220517
  Transmission Date: 20220721
  Serious: Yes (Hospitalization)
  Sender: FDA-Public Use
  Company Number: None

PATIENT
  Sex: Male
  Weight: 87.5 kg

DRUGS (1)
  1. RITUXIMAB [Suspect]
     Active Substance: RITUXIMAB
     Dates: end: 20220429

REACTIONS (6)
  - Fall [None]
  - Mental status changes [None]
  - Gait disturbance [None]
  - Blood sodium decreased [None]
  - Blood chloride decreased [None]
  - Blood osmolarity decreased [None]

NARRATIVE: CASE EVENT DATE: 20220515
